FAERS Safety Report 16076766 (Version 1)
Quarter: 2019Q1

REPORT INFORMATION
  Report Type: Report from Study
  Country: AR (occurrence: AR)
  Receive Date: 20190315
  Receipt Date: 20190315
  Transmission Date: 20190418
  Serious: Yes (Hospitalization)
  Sender: FDA-Public Use
  Company Number: AR-BIOGEN-2019BI00709270

PATIENT
  Age: 61 Year
  Sex: Female

DRUGS (1)
  1. PLEGRIDY [Suspect]
     Active Substance: PEGINTERFERON BETA-1A
     Indication: MULTIPLE SCLEROSIS
     Route: 058
     Dates: start: 201810

REACTIONS (2)
  - Procedural hypertension [Not Recovered/Not Resolved]
  - Breast cancer [Unknown]

NARRATIVE: CASE EVENT DATE: 2019
